FAERS Safety Report 17897581 (Version 1)
Quarter: 2020Q2

REPORT INFORMATION
  Report Type: Spontaneous
  Country: DE (occurrence: DE)
  Receive Date: 20200616
  Receipt Date: 20200616
  Transmission Date: 20200714
  Serious: Yes (Hospitalization)
  Sender: FDA-Public Use
  Company Number: DE-TEVA-2020-DE-1247721

PATIENT
  Age: 74 Year
  Sex: Female
  Weight: 54 kg

DRUGS (13)
  1. DOXORUBICIN [Suspect]
     Active Substance: DOXORUBICIN
     Dosage: NK MG, ACCORDING TO THE SCHEME
  2. COTRIM-CT 800MG/160MG [Concomitant]
     Dosage: 800 | 160 MG / WEEK, 3X
  3. ALLOPURINOL. [Concomitant]
     Active Substance: ALLOPURINOL
     Dosage: 300 MILLIGRAM DAILY; 1-0-0-0
  4. BORTEZOMIB. [Suspect]
     Active Substance: BORTEZOMIB
     Dosage: NK MG, ACCORDING TO THE SCHEME
  5. NEBIVOLOL. [Concomitant]
     Active Substance: NEBIVOLOL
     Dosage: 5 MILLIGRAM DAILY; 0-0-1-0
  6. METFORMIN [Concomitant]
     Active Substance: METFORMIN HYDROCHLORIDE
     Dosage: 2000 MILLIGRAM DAILY;  1-0-1-0
  7. OMEPRAZOL [Concomitant]
     Active Substance: OMEPRAZOLE
     Dosage: 40 MILLIGRAM DAILY; 1-0-0-0
  8. RITUXIMAB. [Suspect]
     Active Substance: RITUXIMAB
     Dosage: NK MG, ACCORDING TO THE SCHEME
  9. CYCLOPHOSPHAMID [Suspect]
     Active Substance: CYCLOPHOSPHAMIDE
     Dosage: NK MG, ACCORDING TO THE SCHEME
  10. ENALAPRIL [Concomitant]
     Active Substance: ENALAPRIL
     Dosage: 10 MILLIGRAM DAILY;  1-0-0-0
  11. LEVOTHYROXIN-NATRIUM [Concomitant]
     Active Substance: LEVOTHYROXINE SODIUM
     Dosage: .1 MILLIGRAM DAILY;  1-0-0-0
  12. PREDNISOLON [Suspect]
     Active Substance: PREDNISOLONE
     Dosage: NK MG, ACCORDING TO THE SCHEME
  13. ACICLOVIR [Concomitant]
     Active Substance: ACYCLOVIR
     Dosage: 400 MILLIGRAM DAILY; 1-0-0-0

REACTIONS (2)
  - Anaemia [Unknown]
  - Melaena [Unknown]
